FAERS Safety Report 4830600-6 (Version None)
Quarter: 2005Q4

REPORT INFORMATION
  Report Type: 
  Country: None (occurrence: None)
  Receive Date: 20051115
  Receipt Date: 20051102
  Transmission Date: 20060501
  Serious: Yes (Other)
  Sender: FDA-Public Use
  Company Number: 2005150683

PATIENT
  Age: 78 Year
  Sex: Male

DRUGS (2)
  1. XALATAN [Suspect]
     Indication: GLAUCOMA
     Dates: start: 20000103, end: 20050101
  2. RABEPRAZOLE SODIUM [Concomitant]

REACTIONS (3)
  - ASTHMA [None]
  - FATIGUE [None]
  - STRESS [None]
